FAERS Safety Report 6983886-6 (Version None)
Quarter: 2010Q3

REPORT INFORMATION
  Report Type: 
  Country: None (occurrence: None)
  Receive Date: 20100914
  Receipt Date: 20090211
  Transmission Date: 20110219
  Serious: No
  Sender: FDA-Public Use
  Company Number: US-WYE-H08196109

PATIENT
  Age: 37 Year
  Sex: Female

DRUGS (1)
  1. ADVIL LIQUI-GELS [Suspect]
     Dosage: UNKNOWN DOSE, DAILY
     Route: 048

REACTIONS (2)
  - CHEST PAIN [None]
  - PAIN IN EXTREMITY [None]
